FAERS Safety Report 17981284 (Version 12)
Quarter: 2022Q2

REPORT INFORMATION
  Report Type: Spontaneous
  Country: FR (occurrence: FR)
  Receive Date: 20200705
  Receipt Date: 20220608
  Transmission Date: 20220720
  Serious: Yes (Hospitalization, Other)
  Sender: FDA-Public Use
  Company Number: NVSC2020FR185571

PATIENT
  Age: 15 Year
  Sex: Female

DRUGS (42)
  1. CYTARABINE [Suspect]
     Active Substance: CYTARABINE
     Indication: Acute myeloid leukaemia
     Dosage: 2000 MG/M2 DAY 1-5
     Route: 037
  2. CYTARABINE [Suspect]
     Active Substance: CYTARABINE
     Indication: Salvage therapy
     Dosage: 3 G/M2, DAY 1,4 AND 7 DURING CONSOLIDATION THERAPY
     Route: 065
  3. CYTARABINE [Suspect]
     Active Substance: CYTARABINE
     Indication: Acute myeloid leukaemia refractory
     Dosage: UNK, DURING INDUCTION THERAPY ON DAY 1 AND 7
     Route: 037
  4. CYTARABINE [Suspect]
     Active Substance: CYTARABINE
     Indication: Drug therapy
     Dosage: 200 MG/M2, QD, CONTINUOUS INJECTION, DAY 1-7/400 MG/DAY
     Route: 065
  5. CYTARABINE [Suspect]
     Active Substance: CYTARABINE
     Dosage: 3 MG/M2, Q12H
     Route: 065
  6. CYTARABINE [Suspect]
     Active Substance: CYTARABINE
     Dosage: 2000 MG/M2, QD
     Route: 065
  7. FLUDARABINE PHOSPHATE [Suspect]
     Active Substance: FLUDARABINE PHOSPHATE
     Indication: Acute myeloid leukaemia
     Dosage: 30 MG/M2 EVERY 30 MINUTES, DAY 1-5(CONDITIONING THERAPY AFTER TRANSPLANT)
     Route: 065
  8. FLUDARABINE PHOSPHATE [Suspect]
     Active Substance: FLUDARABINE PHOSPHATE
     Indication: Salvage therapy
  9. FLUDARABINE PHOSPHATE [Suspect]
     Active Substance: FLUDARABINE PHOSPHATE
     Indication: Acute myeloid leukaemia refractory
  10. FLUDARABINE PHOSPHATE [Suspect]
     Active Substance: FLUDARABINE PHOSPHATE
     Indication: Drug therapy
  11. CYCLOPHOSPHAMIDE [Suspect]
     Active Substance: CYCLOPHOSPHAMIDE
     Indication: Drug therapy
     Dosage: UNK
     Route: 065
  12. CYCLOPHOSPHAMIDE [Suspect]
     Active Substance: CYCLOPHOSPHAMIDE
     Indication: Bone marrow conditioning regimen
  13. RITUXAN [Suspect]
     Active Substance: RITUXIMAB
     Indication: Drug therapy
     Dosage: UNK, CONDITIONING THERAPY AFTER TRANSPLANT
     Route: 065
  14. RITUXAN [Suspect]
     Active Substance: RITUXIMAB
     Indication: Bone marrow conditioning regimen
  15. RITUXAN [Suspect]
     Active Substance: RITUXIMAB
     Indication: Alloimmunisation
  16. GEMTUZUMAB OZOGAMICIN [Suspect]
     Active Substance: GEMTUZUMAB OZOGAMICIN
     Indication: Salvage therapy
     Dosage: 3 MG/M2, BID DAY 1,4 AND 7 DURING SUPPLEMENTARY COURSE
     Route: 041
  17. GEMTUZUMAB OZOGAMICIN [Suspect]
     Active Substance: GEMTUZUMAB OZOGAMICIN
     Indication: Acute myeloid leukaemia
  18. GEMTUZUMAB OZOGAMICIN [Suspect]
     Active Substance: GEMTUZUMAB OZOGAMICIN
     Indication: Acute myeloid leukaemia refractory
  19. MITOXANTRONE [Suspect]
     Active Substance: MITOXANTRONE HYDROCHLORIDE
     Indication: Acute myeloid leukaemia
     Dosage: 12 MG/M2 (DAY 1-5) DURING INDUCTION THERAPY
     Route: 065
  20. METHOTREXATE [Suspect]
     Active Substance: METHOTREXATE
     Indication: Acute myeloid leukaemia
     Dosage: DAY 1,4 AND 7, INJECTION
     Route: 037
  21. METHOTREXATE [Suspect]
     Active Substance: METHOTREXATE
     Dosage: 120 DF DURING INDUCTION THERAPY
     Route: 037
  22. HYDROCORTISONE [Suspect]
     Active Substance: HYDROCORTISONE
     Indication: Acute myeloid leukaemia
     Dosage: 120 DOSAGE FORM, UNKNOWN
     Route: 037
  23. HYDROCORTISONE [Suspect]
     Active Substance: HYDROCORTISONE
     Dosage: UNK, PRN
     Route: 037
  24. DEXAMETHASONE [Suspect]
     Active Substance: DEXAMETHASONE
     Indication: Acute myeloid leukaemia
     Dosage: UNK, DURING INDUCTION THERAPY
     Route: 037
  25. DEFITELIO [Suspect]
     Active Substance: DEFIBROTIDE SODIUM
     Indication: Prophylaxis
     Dosage: 6.25 MG/KG, EVERY 6 HOURS (6.25 MILLIGRAM/KILOGRAM (380 MILLIGRAM PER DOSE), QID)
     Route: 042
     Dates: start: 20141111, end: 20141201
  26. DEFITELIO [Suspect]
     Active Substance: DEFIBROTIDE SODIUM
     Indication: Stem cell transplant
  27. DEFITELIO [Suspect]
     Active Substance: DEFIBROTIDE SODIUM
     Indication: Venoocclusive liver disease
  28. ICLUSIG [Suspect]
     Active Substance: PONATINIB
     Indication: Acute myeloid leukaemia
     Dosage: 45 MG, QD
     Route: 065
  29. AMSACRINE [Suspect]
     Active Substance: AMSACRINE
     Indication: Acute myeloid leukaemia
     Dosage: 100 MG/M2, QD, DAY 1,2 AND 3
     Route: 065
  30. URSODIOL [Concomitant]
     Active Substance: URSODIOL
     Indication: Prophylaxis
     Dosage: 250 MILLIGRAM, BID (2/DAY)
     Route: 048
     Dates: start: 20141110
  31. URSODIOL [Concomitant]
     Active Substance: URSODIOL
     Indication: Stem cell transplant
  32. URSODIOL [Concomitant]
     Active Substance: URSODIOL
     Indication: Venoocclusive liver disease
  33. DAUNORUBICIN HYDROCHLORIDE [Concomitant]
     Active Substance: DAUNORUBICIN HYDROCHLORIDE
     Indication: Acute myeloid leukaemia
     Dosage: 60 MG/M2, EVERY 1 DAY (60 MILLIGRAM/SQ. METER, QD)
     Route: 065
  34. CLOFARABINE [Concomitant]
     Active Substance: CLOFARABINE
     Indication: Acute myeloid leukaemia
     Dosage: 40 MG/M2, EVERY 1 DAY (40 MILLIGRAM/SQ. METER, QD)
     Route: 065
  35. VALACYCLOVIR HYDROCHLORIDE [Concomitant]
     Active Substance: VALACYCLOVIR HYDROCHLORIDE
     Indication: Stem cell transplant
     Dosage: 1000 MG, QD
     Route: 048
     Dates: start: 20141110
  36. METHYLPREDNISOLONE [Concomitant]
     Active Substance: METHYLPREDNISOLONE
     Indication: Stem cell transplant
     Dosage: 30 MG, Q12H (30 MG/12 H, 2/DAY)
     Route: 042
     Dates: start: 20141128
  37. FLUCONAZOLE [Concomitant]
     Active Substance: FLUCONAZOLE
     Indication: Stem cell transplant
     Dosage: 400 MG, QD
     Route: 042
     Dates: start: 20141125
  38. CYCLOSPORINE [Concomitant]
     Active Substance: CYCLOSPORINE
     Indication: Stem cell transplant
     Dosage: 60 MG, Q12H (60 MG/12 H, 2/DAY)
     Route: 042
     Dates: start: 20141110
  39. PANTOPRAZOLE [Concomitant]
     Active Substance: PANTOPRAZOLE
     Indication: Stem cell transplant
     Dosage: 40 MG, QD /40 MG/J, 1/J
     Route: 042
     Dates: start: 20141110
  40. CELLCEPT [Concomitant]
     Active Substance: MYCOPHENOLATE MOFETIL
     Indication: Stem cell transplant
     Dosage: 1250 MG, Q12H (1,250 MG/12 H, 2/DAY)
     Route: 042
     Dates: start: 20141110
  41. CANCIDAS [Concomitant]
     Active Substance: CASPOFUNGIN ACETATE
     Indication: Stem cell transplant
     Dosage: 70 MG, QD, (70 MG/J, 1/J)
     Route: 042
     Dates: start: 20141125
  42. ONDANSETRON [Concomitant]
     Active Substance: ONDANSETRON
     Indication: Stem cell transplant
     Dosage: 16 MG, QD
     Route: 042
     Dates: start: 20141110

REACTIONS (12)
  - Febrile neutropenia [Recovered/Resolved]
  - Venoocclusive liver disease [Unknown]
  - Cerebral haemorrhage [Recovered/Resolved]
  - Myalgia [Unknown]
  - Sepsis [Unknown]
  - Hypersensitivity [Recovered/Resolved]
  - Granulicatella infection [Unknown]
  - Drug resistance [Unknown]
  - Thrombocytopenia [Unknown]
  - Drug ineffective [Unknown]
  - Toxicity to various agents [Unknown]
  - Off label use [Unknown]

NARRATIVE: CASE EVENT DATE: 20141120
